FAERS Safety Report 10154439 (Version 2)
Quarter: 2014Q3

REPORT INFORMATION
  Report Type: Spontaneous
  Country: JP (occurrence: JP)
  Receive Date: 20140506
  Receipt Date: 20140709
  Transmission Date: 20150326
  Serious: Yes (Other)
  Sender: FDA-Public Use
  Company Number: JP-JNJFOC-20140502072

PATIENT
  Age: 72 Year
  Sex: Male
  Weight: 73 kg

DRUGS (5)
  1. XARELTO [Suspect]
     Active Substance: RIVAROXABAN
     Indication: ATRIAL FIBRILLATION
     Route: 048
     Dates: start: 20140414, end: 20140428
  2. URSO [Concomitant]
     Active Substance: URSODIOL
     Route: 048
  3. XARELTO [Suspect]
     Active Substance: RIVAROXABAN
     Indication: CEREBROVASCULAR ACCIDENT PROPHYLAXIS
     Route: 048
     Dates: start: 20140414, end: 20140428
  4. LIVALO [Concomitant]
     Active Substance: PITAVASTATIN CALCIUM
     Route: 048
  5. MAINTATE [Concomitant]
     Active Substance: BISOPROLOL FUMARATE
     Route: 048

REACTIONS (2)
  - Haemolysis [Unknown]
  - Renal impairment [Recovered/Resolved]

NARRATIVE: CASE EVENT DATE: 20140428
